FAERS Safety Report 9290011 (Version 1)
Quarter: 2013Q2

REPORT INFORMATION
  Report Type: Spontaneous
  Country: US (occurrence: US)
  Receive Date: 20130515
  Receipt Date: 20130515
  Transmission Date: 20140414
  Serious: No
  Sender: FDA-Public Use
  Company Number: US-MYLANLABS-2012S1018829

PATIENT
  Age: 67 Year
  Sex: Female

DRUGS (3)
  1. VERAPAMIL HYDROCHLORIDE EXTENDED-RELEASE CAPSULES [Suspect]
     Indication: BLOOD PRESSURE INCREASED
     Route: 048
     Dates: start: 201208
  2. SYNTHROID [Suspect]
     Indication: HYPOTHYROIDISM
     Route: 048
  3. VERAPAMIL HYDROCHLORIDE EXTENDED-RELEASE CAPSULES [Suspect]
     Indication: BLOOD PRESSURE INCREASED
     Route: 048
     Dates: start: 201207, end: 201208

REACTIONS (1)
  - Drug screen positive [Not Recovered/Not Resolved]
